FAERS Safety Report 18473334 (Version 1)
Quarter: 2020Q4

REPORT INFORMATION
  Report Type: Spontaneous
  Country: US (occurrence: US)
  Receive Date: 20201105
  Receipt Date: 20201105
  Transmission Date: 20210114
  Serious: Yes (Hospitalization)
  Sender: FDA-Public Use
  Company Number: None

PATIENT
  Age: 49 Year
  Sex: Female
  Weight: 103.4 kg

DRUGS (2)
  1. ALIMTA [Suspect]
     Active Substance: PEMETREXED DISODIUM
     Dates: end: 20200928
  2. CISPLATIN. [Suspect]
     Active Substance: CISPLATIN
     Dates: end: 20200928

REACTIONS (4)
  - Constipation [None]
  - Drug ineffective [None]
  - Faecaloma [None]
  - Condition aggravated [None]

NARRATIVE: CASE EVENT DATE: 20201009
